FAERS Safety Report 17317211 (Version 1)
Quarter: 2020Q1

REPORT INFORMATION
  Report Type: Report from Study
  Country: US (occurrence: US)
  Receive Date: 20200124
  Receipt Date: 20200124
  Transmission Date: 20200409
  Serious: Yes (Hospitalization)
  Sender: FDA-Public Use
  Company Number: US-TAIHO ONCOLOGY  INC-EU-2020-00157

PATIENT
  Age: 66 Year
  Sex: Female
  Weight: 71.73 kg

DRUGS (11)
  1. HYDROCODONE BITARTRATE AND ACETAMINOPHEN [Concomitant]
     Active Substance: ACETAMINOPHEN\HYDROCODONE BITARTRATE
  2. ZOFRAN [Concomitant]
     Active Substance: ONDANSETRON HYDROCHLORIDE
  3. AMLODIPINE [Concomitant]
     Active Substance: AMLODIPINE BESYLATE
  4. VITAMIN D2 [Concomitant]
     Active Substance: ERGOCALCIFEROL
  5. MIRALAX [Concomitant]
     Active Substance: POLYETHYLENE GLYCOL 3350
  6. FERROUS GLUCONATE [Concomitant]
     Active Substance: FERROUS GLUCONATE
  7. LONSURF [Suspect]
     Active Substance: TIPIRACIL HYDROCHLORIDE\TRIFLURIDINE
     Indication: RECTAL CANCER
     Route: 048
     Dates: start: 20191121
  8. LISINOPRIL. [Concomitant]
     Active Substance: LISINOPRIL
  9. VITAMIN A [Concomitant]
     Active Substance: VITAMIN A
  10. SENNA LAXATIVE [Concomitant]
     Active Substance: SENNOSIDES
  11. METOPROLOL. [Concomitant]
     Active Substance: METOPROLOL

REACTIONS (1)
  - Unevaluable event [Recovering/Resolving]

NARRATIVE: CASE EVENT DATE: 20200109
